FAERS Safety Report 9668299 (Version 1)
Quarter: 2013Q4

REPORT INFORMATION
  Report Type: Spontaneous
  Country: US (occurrence: US)
  Receive Date: 20131104
  Receipt Date: 20131104
  Transmission Date: 20140711
  Serious: No
  Sender: FDA-Public Use
  Company Number: US-PFIZER INC-2013313102

PATIENT
  Sex: Male

DRUGS (1)
  1. CHANTIX [Suspect]
     Dosage: 1 MG, UNK

REACTIONS (6)
  - Hypophagia [Unknown]
  - Nausea [Unknown]
  - Abdominal pain upper [Unknown]
  - Ulcer [Unknown]
  - Vomiting [Unknown]
  - Malaise [Unknown]
